FAERS Safety Report 5863854-8 (Version None)
Quarter: 2008Q3

REPORT INFORMATION
  Report Type: 
  Country: None (occurrence: None)
  Receive Date: 20080821
  Receipt Date: 20080807
  Transmission Date: 20090109
  Serious: Yes (Other)
  Sender: FDA-Public Use
  Company Number: AEUSA200800169

PATIENT
  Age: 58 Year
  Sex: Male
  Weight: 103.9 kg

DRUGS (2)
  1. GAMUNEX [Suspect]
     Indication: THROMBOCYTOPENIA
     Dosage: 200 GM;QD; IV
     Route: 042
     Dates: start: 20080726, end: 20080806
  2. ATGAM [Suspect]
     Dosage: 40 MG/KG;QD;IV
     Route: 042
     Dates: start: 20080729, end: 20080801

REACTIONS (2)
  - DRUG INTERACTION [None]
  - HAEMOLYSIS [None]
